FAERS Safety Report 12986330 (Version 1)
Quarter: 2016Q4

REPORT INFORMATION
  Report Type: Spontaneous
  Country: TR (occurrence: TR)
  Receive Date: 20161130
  Receipt Date: 20161130
  Transmission Date: 20170207
  Serious: Yes (Other)
  Sender: FDA-Public Use
  Company Number: PHHY2016TR060070

PATIENT
  Age: 31 Year
  Sex: Female

DRUGS (1)
  1. GILENYA [Suspect]
     Active Substance: FINGOLIMOD HYDROCHLORIDE
     Indication: MULTIPLE SCLEROSIS
     Dosage: UNK
     Route: 065

REACTIONS (5)
  - Rebound effect [Recovering/Resolving]
  - Multiple sclerosis relapse [Recovering/Resolving]
  - Hemiparesis [Recovered/Resolved]
  - Nervous system disorder [Recovered/Resolved]
  - Confusional state [Recovered/Resolved]
